FAERS Safety Report 9223876 (Version 1)
Quarter: 2013Q2

REPORT INFORMATION
  Report Type: Spontaneous
  Country: US (occurrence: US)
  Receive Date: 20130411
  Receipt Date: 20130411
  Transmission Date: 20140414
  Serious: Yes (Death, Hospitalization, Other)
  Sender: FDA-Public Use
  Company Number: US-BIOGENIDEC-2007BI026043

PATIENT
  Age: 63 Year
  Sex: Male

DRUGS (2)
  1. AVONEX [Suspect]
     Indication: MULTIPLE SCLEROSIS
     Route: 030
  2. CHEMOTHERAPY [Concomitant]
     Indication: MULTIPLE SCLEROSIS

REACTIONS (4)
  - Squamous cell carcinoma of skin [Recovered/Resolved]
  - Skin cancer metastatic [Recovered/Resolved]
  - Adverse drug reaction [Fatal]
  - Neoplasm malignant [Unknown]
